FAERS Safety Report 21930012 (Version 1)
Quarter: 2023Q1

REPORT INFORMATION
  Report Type: Spontaneous
  Country: IT (occurrence: IT)
  Receive Date: 20230131
  Receipt Date: 20230131
  Transmission Date: 20230418
  Serious: Yes (Death, Hospitalization, Other)
  Sender: FDA-Public Use
  Company Number: IT-STERISCIENCE B.V.-2023-ST-000385

PATIENT
  Age: 74 Year
  Sex: Male

DRUGS (17)
  1. PIPERACILLIN SODIUM\TAZOBACTAM SODIUM [Suspect]
     Active Substance: PIPERACILLIN SODIUM\TAZOBACTAM SODIUM
     Indication: Cytomegalovirus infection
     Dosage: UNK
     Route: 042
     Dates: start: 2017
  2. GANCICLOVIR SODIUM [Suspect]
     Active Substance: GANCICLOVIR SODIUM
     Indication: Cytomegalovirus infection
     Dosage: 5 MILLIGRAM/KILOGRAM, BID
     Route: 042
     Dates: start: 2017, end: 2017
  3. GANCICLOVIR SODIUM [Suspect]
     Active Substance: GANCICLOVIR SODIUM
     Dosage: UNK
     Route: 065
     Dates: start: 2017
  4. LEVOFLOXACIN [Suspect]
     Active Substance: LEVOFLOXACIN
     Indication: Cytomegalovirus infection
     Dosage: UNK
     Route: 042
     Dates: start: 2017
  5. FOSCARNET [Suspect]
     Active Substance: FOSCARNET
     Indication: Cytomegalovirus infection
     Dosage: 20 MILLIGRAM/KILOGRAM
     Dates: start: 2017, end: 2017
  6. RITUXIMAB [Concomitant]
     Active Substance: RITUXIMAB
     Indication: Mantle cell lymphoma stage IV
     Dosage: CYCLE 1, 375 MILLIGRAM/SQ. METER, Q28D
     Dates: start: 2017
  7. RITUXIMAB [Concomitant]
     Active Substance: RITUXIMAB
     Dosage: CYCLE 2, 375 MILLIGRAM/SQ. METER, Q28D
     Dates: start: 2017
  8. RITUXIMAB [Concomitant]
     Active Substance: RITUXIMAB
     Dosage: CYCLE 3, 375 MILLIGRAM/SQ. METER, Q28D
     Dates: start: 2017
  9. RITUXIMAB [Concomitant]
     Active Substance: RITUXIMAB
     Dosage: CYCLE 4, 375 MILLIGRAM/SQ. METER, Q28D
     Dates: start: 2017
  10. RITUXIMAB [Concomitant]
     Active Substance: RITUXIMAB
     Dosage: CYCLE 5, 375 MILLIGRAM/SQ. METER, Q28D
     Dates: start: 2017
  11. BENDAMUSTINE [Concomitant]
     Active Substance: BENDAMUSTINE
     Indication: Mantle cell lymphoma stage IV
     Dosage: CYCLE 1, 70 MILLIGRAM/SQ. METER, Q28D
     Dates: start: 2017
  12. BENDAMUSTINE [Concomitant]
     Active Substance: BENDAMUSTINE
     Dosage: CYCLE 2, 70 MILLIGRAM/SQ. METER, Q28D
     Dates: start: 2017
  13. BENDAMUSTINE [Concomitant]
     Active Substance: BENDAMUSTINE
     Dosage: CYCLE 3, 70 MILLIGRAM/SQ. METER, Q28D
     Dates: start: 2017
  14. BENDAMUSTINE [Concomitant]
     Active Substance: BENDAMUSTINE
     Dosage: CYCLE 4, 70 MILLIGRAM/SQ. METER, Q28D
     Dates: start: 2017
  15. BENDAMUSTINE [Concomitant]
     Active Substance: BENDAMUSTINE
     Dosage: CYCLE 5, 70 MILLIGRAM/SQ. METER, Q28D
     Dates: start: 2017
  16. VORICONAZOLE [Concomitant]
     Active Substance: VORICONAZOLE
     Indication: Candida infection
     Dosage: UNK
     Dates: start: 2017
  17. VORICONAZOLE [Concomitant]
     Active Substance: VORICONAZOLE
     Indication: Aspergillus infection

REACTIONS (4)
  - Drug ineffective for unapproved indication [Fatal]
  - Paraesthesia [Unknown]
  - Tremor [Unknown]
  - Psychomotor hyperactivity [Unknown]

NARRATIVE: CASE EVENT DATE: 20170101
